FAERS Safety Report 9362930 (Version 3)
Quarter: 2013Q3

REPORT INFORMATION
  Report Type: Spontaneous
  Country: JP (occurrence: JP)
  Receive Date: 20130624
  Receipt Date: 20130816
  Transmission Date: 20140515
  Serious: Yes (Life-Threatening)
  Sender: FDA-Public Use
  Company Number: JP-ROCHE-1240309

PATIENT
  Age: 49 Year
  Sex: Male

DRUGS (7)
  1. RITUXIMAB [Suspect]
     Indication: LYMPHOMA
     Route: 042
     Dates: start: 20130604, end: 20130604
  2. ENDOXAN [Concomitant]
     Indication: LYMPHOMA
     Route: 042
     Dates: start: 20130605, end: 20130605
  3. ADRIACIN [Concomitant]
     Indication: LYMPHOMA
     Route: 042
     Dates: start: 20130605, end: 20130605
  4. ONCOVIN [Concomitant]
     Indication: LYMPHOMA
     Route: 042
     Dates: start: 20130605, end: 20130605
  5. PREDONINE [Concomitant]
     Indication: LYMPHOMA
     Route: 048
     Dates: start: 20130605, end: 20130609
  6. EMEND [Concomitant]
     Indication: LYMPHOMA
     Route: 048
     Dates: start: 20130605, end: 20130605
  7. ALOXI [Concomitant]
     Indication: LYMPHOMA
     Route: 042
     Dates: start: 20130605, end: 20130605

REACTIONS (3)
  - Disseminated intravascular coagulation [Recovered/Resolved]
  - Sepsis [Recovered/Resolved]
  - Tumour lysis syndrome [Recovered/Resolved]
